FAERS Safety Report 25022104 (Version 1)
Quarter: 2025Q1

REPORT INFORMATION
  Report Type: Spontaneous
  Country: BR (occurrence: BR)
  Receive Date: 20250228
  Receipt Date: 20250228
  Transmission Date: 20250409
  Serious: Yes (Hospitalization, Other)
  Sender: NOVO NORDISK
  Company Number: BR-NOVOPROD-1373234

PATIENT
  Age: 82 Year
  Sex: Female

DRUGS (1)
  1. NOVOLIN N [Suspect]
     Active Substance: INSULIN HUMAN
     Indication: Diabetes mellitus

REACTIONS (12)
  - Fall [Unknown]
  - Hand fracture [Unknown]
  - Head injury [Unknown]
  - Joint injury [Unknown]
  - Skin discolouration [Unknown]
  - Limb injury [Unknown]
  - Eye contusion [Unknown]
  - Hypoglycaemia [Unknown]
  - Decreased appetite [Unknown]
  - Dysacusis [Unknown]
  - Asthenia [Unknown]
  - Insomnia [Unknown]
